FAERS Safety Report 9689411 (Version 1)
Quarter: 2013Q4

REPORT INFORMATION
  Report Type: Spontaneous
  Country: TR (occurrence: TR)
  Receive Date: 20131114
  Receipt Date: 20131114
  Transmission Date: 20140711
  Serious: Yes (Other)
  Sender: FDA-Public Use
  Company Number: PHHY2013TR128365

PATIENT
  Sex: Female

DRUGS (4)
  1. MIRTAZAPINE [Suspect]
  2. ALPRAZOLAM [Suspect]
  3. DIAZEPAM [Suspect]
  4. TRIFLUOPERAZINE [Suspect]

REACTIONS (2)
  - Abortion spontaneous [Unknown]
  - Maternal exposure during pregnancy [Unknown]
